FAERS Safety Report 23603876 (Version 3)
Quarter: 2025Q1

REPORT INFORMATION
  Report Type: Report from Study
  Country: US (occurrence: US)
  Receive Date: 20240307
  Receipt Date: 20250129
  Transmission Date: 20250409
  Serious: No
  Sender: TAKEDA
  Company Number: US-TAKEDA-2024TUS004074

PATIENT
  Age: 49 Year
  Sex: Female
  Weight: 57 kg

DRUGS (3)
  1. MARIBAVIR [Suspect]
     Active Substance: MARIBAVIR
     Indication: Cytomegalovirus infection
     Dosage: 2 DOSAGE FORM, BID
  2. MARIBAVIR [Suspect]
     Active Substance: MARIBAVIR
     Indication: Renal transplant
     Dosage: 2 DOSAGE FORM, BID
     Dates: start: 20240117
  3. MARIBAVIR [Suspect]
     Active Substance: MARIBAVIR
     Dosage: 400 MILLIGRAM, BID

REACTIONS (2)
  - Off label use [Unknown]
  - Taste disorder [Unknown]

NARRATIVE: CASE EVENT DATE: 20240117
